FAERS Safety Report 4543823-0 (Version None)
Quarter: 2004Q4

REPORT INFORMATION
  Report Type: 
  Country: None (occurrence: None)
  Receive Date: 20041229
  Receipt Date: 20041229
  Transmission Date: 20050328
  Serious: Yes (Hospitalization, Other)
  Sender: FDA-Public Use
  Company Number: None

PATIENT
  Age: 77 Year
  Sex: Female
  Weight: 65.318 kg

DRUGS (2)
  1. VIOXX [Suspect]
     Indication: OSTEOARTHRITIS
     Dosage: 1 TABL DAILY
     Dates: start: 20020401
  2. VIOXX [Suspect]
     Indication: OSTEOARTHRITIS
     Dosage: 1 TABL DAILY
     Dates: start: 20041004

REACTIONS (1)
  - MYOCARDIAL INFARCTION [None]
